FAERS Safety Report 8365524-3 (Version None)
Quarter: 2012Q2

REPORT INFORMATION
  Report Type: 
  Country: None (occurrence: None)
  Receive Date: 20120516
  Receipt Date: 20120504
  Transmission Date: 20120825
  Serious: Yes (Hospitalization, Other)
  Sender: FDA-Public Use
  Company Number: FR-ELI_LILLY_AND_COMPANY-FR201205001377

PATIENT
  Sex: Female

DRUGS (5)
  1. PRAZEPAM [Concomitant]
     Dosage: 5 MG, AT BEDTIME
     Route: 048
  2. PULMICORT [Concomitant]
     Dosage: 2 DF, QD
     Route: 055
  3. BRICANYL LP [Concomitant]
     Dosage: 5 MG, QD
     Route: 048
  4. COZAAR [Concomitant]
     Dosage: 50 MG, QD
     Route: 048
  5. PROZAC [Suspect]
     Dosage: 20 MG, QD
     Route: 048
     Dates: start: 20120119, end: 20120209

REACTIONS (6)
  - GENERAL PHYSICAL HEALTH DETERIORATION [None]
  - ATRIOVENTRICULAR BLOCK FIRST DEGREE [None]
  - ALTERED STATE OF CONSCIOUSNESS [None]
  - HIATUS HERNIA [None]
  - CARDIOMEGALY [None]
  - HYPONATRAEMIA [None]
